FAERS Safety Report 18523243 (Version 2)
Quarter: 2020Q4

REPORT INFORMATION
  Report Type: Report from Study
  Country: IT (occurrence: IT)
  Receive Date: 20201119
  Receipt Date: 20201204
  Transmission Date: 20210114
  Serious: Yes (Other)
  Sender: FDA-Public Use
  Company Number: IT-PFIZER INC-2020452385

PATIENT
  Age: 49 Year
  Sex: Female
  Weight: 50 kg

DRUGS (9)
  1. LEUPRORELIN [Concomitant]
     Active Substance: LEUPROLIDE ACETATE
     Dosage: 1 DF (VIAL), MONTHLY
     Route: 030
  2. DEURSIL [Concomitant]
     Active Substance: URSODIOL
     Indication: HEPATOTOXICITY
     Dosage: 1 DF, 1X/DAY
  3. TRASTUZUMAB. [Suspect]
     Active Substance: TRASTUZUMAB
     Dosage: CURRENTLY THE 9TH ADMINISTRATION WAS PERFORMED AND THE 10TH HAS BEEN AT THE MOMENT NOT PERFORMED
     Route: 065
  4. LYRICA [Concomitant]
     Active Substance: PREGABALIN
     Indication: NEUROTOXICITY
     Dosage: 1 DF, 1X/DAY
  5. EXEMESTANE. [Concomitant]
     Active Substance: EXEMESTANE
     Dosage: 1 DF, 1X/DAY
     Dates: start: 201912
  6. TRASTUZUMAB EMTANSINE [Suspect]
     Active Substance: ADO-TRASTUZUMAB EMTANSINE
     Dosage: 180 MG, FREQ 21 D
     Route: 042
     Dates: start: 20201001
  7. TRASTUZUMAB EMTANSINE [Suspect]
     Active Substance: ADO-TRASTUZUMAB EMTANSINE
     Dosage: 200 MG, FREQ 21 D, 9TH ADMINISTRATION PERFORMED.
     Route: 042
     Dates: start: 20200922
  8. REAPTAN [Concomitant]
     Active Substance: AMLODIPINE BESYLATE\PERINDOPRIL ARGININE
     Indication: HYPERTENSION
     Dosage: 1 DF, 1X/DAY
  9. TRASTUZUMAB EMTANSINE [Suspect]
     Active Substance: ADO-TRASTUZUMAB EMTANSINE
     Indication: BREAST NEOPLASM
     Dosage: 300 MG, EVERY 3 WEEKS 08/09/2020 THE 9TH DRUG ADMINISTRATION SCHEDULED
     Route: 042
     Dates: start: 20200310, end: 20200922

REACTIONS (4)
  - Rash [Unknown]
  - Dysplastic naevus [Unknown]
  - Spider naevus [Unknown]
  - Hyperbilirubinaemia [Not Recovered/Not Resolved]

NARRATIVE: CASE EVENT DATE: 202009
